FAERS Safety Report 6587866-4 (Version None)
Quarter: 2010Q1

REPORT INFORMATION
  Report Type: 
  Country: None (occurrence: None)
  Receive Date: 20100218
  Receipt Date: 20100215
  Transmission Date: 20100710
  Serious: Yes (Life-Threatening, Hospitalization, Other)
  Sender: FDA-Public Use
  Company Number: AU-ROXANE LABORATORIES, INC.-2010-RO-00161RO

PATIENT
  Age: 46 Year
  Sex: Female

DRUGS (3)
  1. FLECAINIDE ACETATE [Suspect]
     Indication: ATRIAL FIBRILLATION
     Dosage: 200 MG
  2. ASPIRIN [Suspect]
     Dosage: 100 MG
  3. BISOPROLOL [Concomitant]

REACTIONS (9)
  - ARRHYTHMOGENIC RIGHT VENTRICULAR DYSPLASIA [None]
  - BLOOD LACTIC ACID INCREASED [None]
  - CARDIO-RESPIRATORY ARREST [None]
  - LEFT VENTRICULAR DYSFUNCTION [None]
  - METABOLIC ACIDOSIS [None]
  - PULMONARY OEDEMA [None]
  - STRESS CARDIOMYOPATHY [None]
  - VENTRICULAR FIBRILLATION [None]
  - VENTRICULAR TACHYCARDIA [None]
